FAERS Safety Report 9354506 (Version 2)
Quarter: 2013Q3

REPORT INFORMATION
  Report Type: Spontaneous
  Country: US (occurrence: US)
  Receive Date: 20130618
  Receipt Date: 20130709
  Transmission Date: 20140515
  Serious: No
  Sender: FDA-Public Use
  Company Number: US-009507513-1306USA002931

PATIENT
  Age: 33 Year
  Sex: Female
  Weight: 166.4 kg

DRUGS (4)
  1. IMPLANON [Suspect]
     Indication: CONTRACEPTION
     Dosage: 68 MG
     Route: 059
     Dates: start: 20100514, end: 20130607
  2. INSULIN [Concomitant]
  3. GLYBURIDE [Concomitant]
  4. ALPRAZOLAM [Concomitant]

REACTIONS (5)
  - Pain [Recovered/Resolved]
  - Weight increased [Not Recovered/Not Resolved]
  - Medical device complication [Recovered/Resolved]
  - Incorrect drug administration duration [Unknown]
  - Device difficult to use [Recovered/Resolved]
